FAERS Safety Report 4883119-0 (Version None)
Quarter: 2006Q1

REPORT INFORMATION
  Report Type: 
  Country: None (occurrence: None)
  Receive Date: 20060117
  Receipt Date: 20060117
  Transmission Date: 20060701
  Serious: Yes (Hospitalization)
  Sender: FDA-Public Use
  Company Number: None

PATIENT
  Sex: Male
  Weight: 110.5 kg

DRUGS (2)
  1. ERTAPENUM      1G [Suspect]
     Indication: PROPHYLAXIS
     Dosage: 1G    QD   IV
     Route: 042
     Dates: start: 20051022, end: 20051023
  2. ERTAPENUM      1G [Suspect]
     Indication: TOE AMPUTATION
     Dosage: 1G    QD   IV
     Route: 042
     Dates: start: 20051022, end: 20051023

REACTIONS (5)
  - BLOOD PRESSURE ABNORMAL [None]
  - DIARRHOEA [None]
  - DIZZINESS [None]
  - NAUSEA [None]
  - VOMITING [None]
